FAERS Safety Report 4906320-6 (Version None)
Quarter: 2006Q1

REPORT INFORMATION
  Report Type: 
  Country: None (occurrence: None)
  Receive Date: 20060209
  Receipt Date: 20060131
  Transmission Date: 20060701
  Serious: Yes (Hospitalization)
  Sender: FDA-Public Use
  Company Number: US-JNJFOC-20051200275

PATIENT
  Sex: Female
  Weight: 48.54 kg

DRUGS (1)
  1. RAZADYNE ER [Suspect]
     Route: 048

REACTIONS (4)
  - FAECAL INCONTINENCE [None]
  - PANIC ATTACK [None]
  - SURGERY [None]
  - URINARY INCONTINENCE [None]
